FAERS Safety Report 9099429 (Version 1)
Quarter: 2013Q1

REPORT INFORMATION
  Report Type: Spontaneous
  Country: GB (occurrence: GB)
  Receive Date: 20130214
  Receipt Date: 20130214
  Transmission Date: 20140127
  Serious: Yes (Disabling)
  Sender: FDA-Public Use
  Company Number: GB-009507513-1302GBR004755

PATIENT
  Age: 65 Year
  Sex: Male

DRUGS (1)
  1. TIMOPTOL [Suspect]
     Dosage: 1 DF, QD
     Route: 047
     Dates: start: 201208, end: 201211

REACTIONS (3)
  - Peyronie^s disease [Not Recovered/Not Resolved]
  - Sexual dysfunction [Unknown]
  - Product substitution issue [Unknown]
